FAERS Safety Report 9403542 (Version 5)
Quarter: 2013Q4

REPORT INFORMATION
  Report Type: Report from Study
  Country: ES (occurrence: ES)
  Receive Date: 20130716
  Receipt Date: 20131011
  Transmission Date: 20140711
  Serious: Yes (Hospitalization)
  Sender: FDA-Public Use
  Company Number: ES-PFIZER INC-2013203011

PATIENT
  Age: 28 Year
  Sex: Male
  Weight: 89 kg

DRUGS (6)
  1. TOFACITINIB CITRATE [Suspect]
     Indication: RHEUMATOID ARTHRITIS
     Dosage: 10 MG, 2X/DAY
     Route: 048
     Dates: start: 20121114, end: 20130805
  2. OMEPRAZOL [Concomitant]
     Indication: PROPHYLAXIS
     Dosage: 20 MG, UNK
     Route: 048
     Dates: start: 20120626
  3. PARACETAMOL [Concomitant]
     Indication: RHEUMATOID ARTHRITIS
     Dosage: 1 G, UNK
     Route: 048
     Dates: start: 20120126
  4. ARAVA [Concomitant]
     Indication: RHEUMATOID ARTHRITIS
     Dosage: 20 MG, 1X/DAY
     Route: 048
     Dates: end: 20130414
  5. ARAVA [Concomitant]
     Dosage: 10 MG, 1X/DAY (1-0-0)
     Route: 048
     Dates: start: 20130415, end: 20130507
  6. DACORTIN [Concomitant]
     Indication: RHEUMATOID ARTHRITIS
     Dosage: 5 MG, 1X/DAY (1-0-0)
     Route: 048
     Dates: start: 20120626

REACTIONS (1)
  - Appendicitis [Recovered/Resolved]
